FAERS Safety Report 11672528 (Version 2)
Quarter: 2015Q4

REPORT INFORMATION
  Report Type: Spontaneous
  Country: US (occurrence: US)
  Receive Date: 20151028
  Receipt Date: 20151030
  Transmission Date: 20160304
  Serious: Yes (Other)
  Sender: FDA-Public Use
  Company Number: US-DRREDDYS-USA/USA/15/0053597

PATIENT
  Sex: Female
  Weight: 48.5 kg

DRUGS (1)
  1. ZENATANE [Suspect]
     Active Substance: ISOTRETINOIN
     Indication: ACNE
     Route: 048
     Dates: start: 20150909, end: 20150914

REACTIONS (3)
  - Mental status changes [Recovered/Resolved]
  - Anger [Recovered/Resolved]
  - Depressed mood [Recovered/Resolved]
